FAERS Safety Report 6209535-2 (Version None)
Quarter: 2009Q2

REPORT INFORMATION
  Report Type: 
  Country: None (occurrence: None)
  Receive Date: 20090601
  Receipt Date: 20090526
  Transmission Date: 20091009
  Serious: Yes (Hospitalization, Other)
  Sender: FDA-Public Use
  Company Number: US-TEVA-196250USA

PATIENT
  Sex: Female

DRUGS (1)
  1. QUININE SULFATE [Suspect]
     Indication: MUSCLE SPASMS
     Route: 048
     Dates: start: 20070426

REACTIONS (4)
  - ANAEMIA [None]
  - ENTEROCOLITIS HAEMORRHAGIC [None]
  - GASTRITIS [None]
  - THROMBOCYTOPENIA [None]
